FAERS Safety Report 5557369-4 (Version None)
Quarter: 2007Q4

REPORT INFORMATION
  Report Type: 
  Country: None (occurrence: None)
  Receive Date: 20071211
  Receipt Date: 20071127
  Transmission Date: 20080405
  Serious: Yes (Other)
  Sender: FDA-Public Use
  Company Number: S04-FRA-07293-01

PATIENT
  Age: 92 Year
  Sex: Female
  Weight: 65 kg

DRUGS (4)
  1. MEMANTINE HCL [Suspect]
     Indication: DEMENTIA ALZHEIMER'S TYPE
     Dosage: 20 MG QD PO
     Route: 048
     Dates: start: 20031201
  2. LEVOTHYROXINE SODIUM [Concomitant]
  3. MIANSERIN [Concomitant]
  4. ASPIRIN [Concomitant]

REACTIONS (2)
  - PEMPHIGUS [None]
  - RASH GENERALISED [None]
